FAERS Safety Report 4849232-9 (Version None)
Quarter: 2005Q4

REPORT INFORMATION
  Report Type: 
  Country: None (occurrence: None)
  Receive Date: 20051209
  Receipt Date: 20051205
  Transmission Date: 20060501
  Serious: Yes (Death, Other)
  Sender: FDA-Public Use
  Company Number: US-MERCK-0512USA00672

PATIENT
  Age: 47 Year
  Sex: Male

DRUGS (6)
  1. VIOXX [Suspect]
     Indication: RHEUMATOID ARTHRITIS
     Route: 048
     Dates: end: 20031213
  2. VIOXX [Suspect]
     Route: 048
     Dates: end: 20031213
  3. CELEBREX [Concomitant]
     Route: 065
  4. PLAVIX [Concomitant]
     Route: 065
  5. PREDNISONE [Concomitant]
     Route: 065
  6. LORTAB [Concomitant]
     Route: 065

REACTIONS (3)
  - CEREBROVASCULAR ACCIDENT [None]
  - DEATH [None]
  - MYOCARDIAL INFARCTION [None]
